FAERS Safety Report 7691213-4 (Version None)
Quarter: 2011Q3

REPORT INFORMATION
  Report Type: 
  Country: None (occurrence: None)
  Receive Date: 20110815
  Receipt Date: 20110801
  Transmission Date: 20111222
  Serious: Yes (Other)
  Sender: FDA-Public Use
  Company Number: TPA2011A00137

PATIENT
  Age: 68 Year
  Sex: Male
  Weight: 104.7809 kg

DRUGS (4)
  1. JANUVIA [Concomitant]
  2. AMARYL [Concomitant]
  3. LIPITOR [Concomitant]
  4. ACTOS [Suspect]
     Indication: TYPE 2 DIABETES MELLITUS
     Dosage: 45 MG, 1 IN 1 D, PER ORAL
     Route: 048
     Dates: start: 20010723

REACTIONS (1)
  - BLADDER CANCER STAGE 0, WITH CANCER IN SITU [None]
